FAERS Safety Report 7917223-7 (Version None)
Quarter: 2011Q4

REPORT INFORMATION
  Report Type: 
  Country: None (occurrence: None)
  Receive Date: 20111116
  Receipt Date: 20111102
  Transmission Date: 20120403
  Serious: Yes (Hospitalization, Other)
  Sender: FDA-Public Use
  Company Number: PHHY2010CA75361

PATIENT
  Sex: Female

DRUGS (3)
  1. ACETAMINOPHEN [Concomitant]
  2. SANDOSTATIN LAR [Suspect]
     Indication: NEUROENDOCRINE TUMOUR
     Dosage: 30 MG, QMO
     Route: 030
     Dates: start: 20101102
  3. SANDOSTATIN LAR [Suspect]
     Dosage: 30 MG, EVERY FOUR WEEKS
     Route: 030

REACTIONS (24)
  - STAPHYLOCOCCAL INFECTION [None]
  - NAUSEA [None]
  - FATIGUE [None]
  - DIARRHOEA [None]
  - VOMITING [None]
  - MALAISE [None]
  - SWELLING FACE [None]
  - CONSTIPATION [None]
  - ABDOMINAL PAIN [None]
  - GASTROOESOPHAGEAL REFLUX DISEASE [None]
  - OEDEMA PERIPHERAL [None]
  - SWELLING [None]
  - ABDOMINAL DISTENSION [None]
  - LOCALISED OEDEMA [None]
  - PAIN [None]
  - THROMBOSIS [None]
  - ABDOMINAL HERNIA [None]
  - ASCITES [None]
  - MEMORY IMPAIRMENT [None]
  - WEIGHT DECREASED [None]
  - INTESTINAL OBSTRUCTION [None]
  - FALL [None]
  - DEHYDRATION [None]
  - BLOOD PRESSURE SYSTOLIC INCREASED [None]
